FAERS Safety Report 7284834-4 (Version None)
Quarter: 2011Q1

REPORT INFORMATION
  Report Type: 
  Country: None (occurrence: None)
  Receive Date: 20110210
  Receipt Date: 20110208
  Transmission Date: 20110831
  Serious: Yes (Death, Other)
  Sender: FDA-Public Use
  Company Number: US-PFIZER INC-2010061593

PATIENT
  Sex: Male

DRUGS (6)
  1. NORFLEX [Concomitant]
     Indication: MUSCLE RELAXANT THERAPY
     Dosage: UNK
     Dates: start: 20040101, end: 20080101
  2. ANDROGEL [Concomitant]
     Indication: BLOOD TESTOSTERONE DECREASED
     Dosage: UNK
     Dates: start: 20040101, end: 20080101
  3. SEROQUEL [Concomitant]
     Dosage: UNK
     Dates: start: 20050101, end: 20080101
  4. CHANTIX [Suspect]
     Indication: SMOKING CESSATION THERAPY
     Dosage: 1 MG, UNK
     Dates: start: 20081101, end: 20081201
  5. LORTAB [Concomitant]
     Indication: PAIN
     Dosage: UNK
     Dates: start: 20000101, end: 20080101
  6. WELLBUTRIN [Concomitant]
     Indication: ANTIDEPRESSANT THERAPY
     Dosage: UNK
     Dates: start: 20050101, end: 20080101

REACTIONS (2)
  - DEPRESSION [None]
  - COMPLETED SUICIDE [None]
